FAERS Safety Report 6788015-X (Version None)
Quarter: 2010Q2

REPORT INFORMATION
  Report Type: 
  Country: None (occurrence: None)
  Receive Date: 20100623
  Receipt Date: 20071215
  Transmission Date: 20101027
  Serious: No
  Sender: FDA-Public Use
  Company Number: US-PFIZER INC-2007076590

PATIENT
  Sex: Female
  Weight: 125.9 kg

DRUGS (7)
  1. DEPO-PROVERA SUSPENSION/INJ [Suspect]
     Indication: CONTRACEPTION
     Dosage: FIRST INJECTION
     Dates: start: 19990101, end: 20070401
  2. DEPO-PROVERA SUSPENSION/INJ [Suspect]
     Dates: start: 20070401, end: 20070401
  3. TRAMADOL HCL [Concomitant]
     Route: 048
  4. NAPROXEN [Concomitant]
  5. ADVAIR DISKUS 100/50 [Concomitant]
  6. ALBUTEROL [Concomitant]
  7. FLEXERIL [Concomitant]
     Dates: end: 20070101

REACTIONS (1)
  - AMENORRHOEA [None]
